FAERS Safety Report 8372073-5 (Version None)
Quarter: 2012Q2

REPORT INFORMATION
  Report Type: 
  Country: None (occurrence: None)
  Receive Date: 20120520
  Receipt Date: 20120423
  Transmission Date: 20120825
  Serious: Yes (Other)
  Sender: FDA-Public Use
  Company Number: PHHY2012KR013540

PATIENT
  Sex: Male
  Weight: 60 kg

DRUGS (2)
  1. EXJADE [Suspect]
     Indication: MYELODYSPLASTIC SYNDROME
     Dosage: 30 MG/KG, UNK
     Route: 048
     Dates: start: 20090121
  2. IMMUNOSUPPRESSANTS [Concomitant]
     Dosage: UNK UKN, UNK
     Route: 065

REACTIONS (3)
  - STOMATITIS [None]
  - GRAFT VERSUS HOST DISEASE [None]
  - DECREASED APPETITE [None]
